FAERS Safety Report 7298473-2 (Version None)
Quarter: 2011Q1

REPORT INFORMATION
  Report Type: 
  Country: None (occurrence: None)
  Receive Date: 20110214
  Receipt Date: 20110214
  Transmission Date: 20110831
  Serious: Yes (Death)
  Sender: FDA-Public Use
  Company Number: None

PATIENT
  Sex: Female

DRUGS (17)
  1. FENOFIBRATE [Concomitant]
  2. PENTOXIFYLLINE [Concomitant]
  3. BENICAR [Concomitant]
  4. SYNTHROID [Concomitant]
  5. RANIBIZUMAB 2.0 MG [Suspect]
     Indication: MACULAR DEGENERATION
     Dosage: 0.05 ML MONTHLY IVP
     Route: 042
     Dates: start: 20100817
  6. RANIBIZUMAB 2.0 MG [Suspect]
     Indication: MACULAR DEGENERATION
     Dosage: 0.05 ML MONTHLY IVP
     Route: 042
     Dates: start: 20101216
  7. RANIBIZUMAB 2.0 MG [Suspect]
     Indication: MACULAR DEGENERATION
     Dosage: 0.05 ML MONTHLY IVP
     Route: 042
     Dates: start: 20100616
  8. RANIBIZUMAB 2.0 MG [Suspect]
     Indication: MACULAR DEGENERATION
     Dosage: 0.05 ML MONTHLY IVP
     Route: 042
     Dates: start: 20101116
  9. RANIBIZUMAB 2.0 MG [Suspect]
     Indication: MACULAR DEGENERATION
     Dosage: 0.05 ML MONTHLY IVP
     Route: 042
     Dates: start: 20100519
  10. RANIBIZUMAB 2.0 MG [Suspect]
     Indication: MACULAR DEGENERATION
     Dosage: 0.05 ML MONTHLY IVP
     Route: 042
     Dates: start: 20100928
  11. RANIBIZUMAB 2.0 MG [Suspect]
     Indication: MACULAR DEGENERATION
     Dosage: 0.05 ML MONTHLY IVP
     Route: 042
     Dates: start: 20101019
  12. RANIBIZUMAB 2.0 MG [Suspect]
     Indication: MACULAR DEGENERATION
     Dosage: 0.05 ML MONTHLY IVP
     Route: 042
     Dates: start: 20100720
  13. LUTEIN [Concomitant]
  14. GABAPENTIN [Concomitant]
  15. ASPIRIN [Concomitant]
  16. FISH OIL [Concomitant]
  17. CENTRUM SILVER [Concomitant]

REACTIONS (1)
  - SUDDEN DEATH [None]
